FAERS Safety Report 7540082-1 (Version None)
Quarter: 2011Q2

REPORT INFORMATION
  Report Type: 
  Country: None (occurrence: None)
  Receive Date: 20110610
  Receipt Date: 20110606
  Transmission Date: 20111010
  Serious: Yes (Hospitalization)
  Sender: FDA-Public Use
  Company Number: US-ABBOTT-11P-163-0730724-00

PATIENT
  Sex: Female
  Weight: 83.082 kg

DRUGS (2)
  1. HUMIRA [Suspect]
     Indication: PSORIASIS
     Route: 058
     Dates: start: 20110105, end: 20110501
  2. HUMIRA [Suspect]
     Route: 058
     Dates: start: 20110603

REACTIONS (3)
  - BRONCHITIS [None]
  - HEART RATE INCREASED [None]
  - CARDIAC DISORDER [None]
